FAERS Safety Report 14940391 (Version 3)
Quarter: 2018Q4

REPORT INFORMATION
  Report Type: Spontaneous
  Country: JP (occurrence: JP)
  Receive Date: 20180525
  Receipt Date: 20181012
  Transmission Date: 20190204
  Serious: Yes (Death, Life-Threatening, Hospitalization)
  Sender: FDA-Public Use
  Company Number: JP-PFIZER INC-2018205724

PATIENT
  Age: 93 Year
  Sex: Female
  Weight: 45 kg

DRUGS (4)
  1. EFFEXOR [Suspect]
     Active Substance: VENLAFAXINE HYDROCHLORIDE
     Dosage: 75 MG, DAILY
     Route: 048
     Dates: start: 20180511, end: 20180517
  2. DIGOXIN. [Suspect]
     Active Substance: DIGOXIN
  3. EFFEXOR [Suspect]
     Active Substance: VENLAFAXINE HYDROCHLORIDE
     Dosage: 37.5 MG, DAILY
     Route: 048
     Dates: start: 20180507, end: 20180510
  4. VASOLAN [VERAPAMIL HYDROCHLORIDE] [Suspect]
     Active Substance: VERAPAMIL HYDROCHLORIDE

REACTIONS (4)
  - Chills [Recovering/Resolving]
  - Supraventricular tachycardia [Recovering/Resolving]
  - Pneumonia aspiration [Fatal]
  - Hyperhidrosis [Unknown]

NARRATIVE: CASE EVENT DATE: 20180517
